FAERS Safety Report 4656666-4 (Version None)
Quarter: 2005Q2

REPORT INFORMATION
  Report Type: 
  Country: None (occurrence: None)
  Receive Date: 20050506
  Receipt Date: 20050426
  Transmission Date: 20051028
  Serious: Yes (Hospitalization)
  Sender: FDA-Public Use
  Company Number: 2005065416

PATIENT
  Sex: Male

DRUGS (2)
  1. XALATAN [Suspect]
     Indication: OCULAR HYPERTENSION
     Dates: start: 20030214, end: 20040101
  2. ACEBUTOLOL CHLORHYDRATE (ACEBUTOLOL) [Suspect]
     Indication: ILL-DEFINED DISORDER
     Dates: end: 20030101

REACTIONS (3)
  - ACUTE RESPIRATORY FAILURE [None]
  - ASTHMA [None]
  - RESPIRATORY DISTRESS [None]
